FAERS Safety Report 21530044 (Version 1)
Quarter: 2022Q4

REPORT INFORMATION
  Report Type: Spontaneous
  Country: FR (occurrence: FR)
  Receive Date: 20221031
  Receipt Date: 20221031
  Transmission Date: 20230113
  Serious: Yes (Hospitalization, Other)
  Sender: FDA-Public Use
  Company Number: None

PATIENT

DRUGS (4)
  1. IBUPROFEN [Suspect]
     Active Substance: IBUPROFEN
     Indication: Poisoning deliberate
     Dosage: 6 G TOTAL (30 TABLETS OF 200MG I.E. 6G OF IBUPROFEN)
     Route: 048
     Dates: start: 20211216, end: 20211216
  2. AMOXICILLIN [Suspect]
     Active Substance: AMOXICILLIN
     Indication: Poisoning deliberate
     Dosage: LESS THAN 6G (A BOX 6CP 1G FOUND)
     Route: 048
     Dates: start: 20211216, end: 20211216
  3. DAFALGAN CODEINE [Suspect]
     Active Substance: ACETAMINOPHEN\CODEINE PHOSPHATE
     Indication: Poisoning deliberate
     Dosage: 16 G TOTAL (32 TABLETS OR 16G OF PARACETAMOL AND 960MG OF CODEINE)
     Dates: start: 20211216, end: 20211216
  4. JOSAMYCIN [Suspect]
     Active Substance: JOSAMYCIN
     Indication: Poisoning deliberate
     Dosage: LESS THAN 6G (1 BOTTLE 60ML FOUND)
     Route: 048
     Dates: start: 20211216, end: 20211216

REACTIONS (3)
  - Hepatic cytolysis [Recovering/Resolving]
  - Toxicity to various agents [Recovered/Resolved]
  - Vomiting [Recovered/Resolved]

NARRATIVE: CASE EVENT DATE: 20211216
